FAERS Safety Report 11167174 (Version 1)
Quarter: 2015Q2

REPORT INFORMATION
  Report Type: Spontaneous
  Country: FR (occurrence: FR)
  Receive Date: 20150605
  Receipt Date: 20150605
  Transmission Date: 20150821
  Serious: Yes (Other)
  Sender: FDA-Public Use
  Company Number: FR-JNJFOC-20150600207

PATIENT
  Age: 78 Year
  Sex: Male

DRUGS (12)
  1. INSPRA [Concomitant]
     Active Substance: EPLERENONE
     Route: 065
  2. PREVISCAN (FLUINDIONE) [Concomitant]
     Active Substance: FLUINDIONE
     Dosage: PREVISCAN,3/4 TABLET ON EVENING DEPENDING ON INTERNATIONAL NORMALIZED RATIO (INR)
     Route: 065
  3. SECTRAL [Concomitant]
     Active Substance: ACEBUTOLOL HYDROCHLORIDE
     Dosage: 0.5 DOSES ON MORNING
     Route: 065
  4. OROCAL [Concomitant]
     Active Substance: CALCIUM CARBONATE
     Route: 065
  5. COZAAR [Concomitant]
     Active Substance: LOSARTAN POTASSIUM
     Route: 065
  6. SOLUPRED [Suspect]
     Active Substance: PREDNISOLONE
     Indication: PRODUCT USED FOR UNKNOWN INDICATION
     Route: 048
     Dates: start: 201503
  7. LANTUS SOLOSTAR [Concomitant]
     Active Substance: INSULIN GLARGINE
     Route: 058
  8. CARDENSIEL [Concomitant]
     Active Substance: BISOPROLOL FUMARATE
     Route: 065
  9. KALEORID [Concomitant]
     Active Substance: POTASSIUM CHLORIDE
     Route: 065
  10. LASILIX [Concomitant]
     Active Substance: FUROSEMIDE
     Route: 065
  11. ENANTONE LP [Concomitant]
     Active Substance: LEUPROLIDE ACETATE
     Route: 065
  12. ZYTIGA [Suspect]
     Active Substance: ABIRATERONE ACETATE
     Indication: PRODUCT USED FOR UNKNOWN INDICATION
     Dosage: 250 MG, 4 DOSES ONCE A DAY
     Route: 048
     Dates: start: 201503

REACTIONS (1)
  - Hypothermia [Recovered/Resolved]

NARRATIVE: CASE EVENT DATE: 201503
